FAERS Safety Report 6381189-4 (Version None)
Quarter: 2009Q3

REPORT INFORMATION
  Report Type: 
  Country: None (occurrence: None)
  Receive Date: 20090929
  Receipt Date: 20090720
  Transmission Date: 20100115
  Serious: No
  Sender: FDA-Public Use
  Company Number: US-TYCO HEALTHCARE/MALLINCKRODT-T200901405

PATIENT
  Sex: Female
  Weight: 86.168 kg

DRUGS (6)
  1. TECHNETIUM TC 99M SESTAMIBI [Suspect]
     Indication: CARDIAC STRESS TEST
     Dosage: UNK
     Route: 042
     Dates: start: 20090720, end: 20090720
  2. ULTRA-TECHNEKOW [Concomitant]
     Indication: CARDIAC STRESS TEST
     Dosage: 31.3 MCI, SINGLE
     Route: 042
     Dates: start: 20090720, end: 20090720
  3. PROAIR HFA [Concomitant]
     Dosage: UNK
  4. CYMBALTA [Concomitant]
     Dosage: UNK
     Route: 048
  5. FOSAMAX [Concomitant]
     Dosage: UNK
     Route: 048
  6. CLARITIN                           /00917501/ [Concomitant]
     Dosage: UNK
     Route: 048

REACTIONS (1)
  - DRUG INEFFECTIVE [None]
